FAERS Safety Report 5758236-3 (Version None)
Quarter: 2008Q2

REPORT INFORMATION
  Report Type: 
  Country: None (occurrence: None)
  Receive Date: 20080604
  Receipt Date: 20080526
  Transmission Date: 20081010
  Serious: Yes (Other)
  Sender: FDA-Public Use
  Company Number: TR-TEVA-172138ISR

PATIENT
  Age: 61 Year
  Sex: Female

DRUGS (4)
  1. METHOTREXATE [Suspect]
     Indication: RHEUMATOID ARTHRITIS
     Route: 048
     Dates: start: 20060901, end: 20080422
  2. METOPROLOL TARTRATE [Concomitant]
     Route: 048
  3. ASPIRIN [Concomitant]
  4. ALPRAZOLAM [Concomitant]
     Route: 048

REACTIONS (3)
  - B-CELL LYMPHOMA [None]
  - RASH GENERALISED [None]
  - SWELLING [None]
